FAERS Safety Report 10746931 (Version 6)
Quarter: 2019Q1

REPORT INFORMATION
  Report Type: Spontaneous
  Country: DE (occurrence: DE)
  Receive Date: 20150129
  Receipt Date: 20190117
  Transmission Date: 20190417
  Serious: Yes (Death, Hospitalization)
  Sender: FDA-Public Use
  Company Number: DE-ROCHE-1526995

PATIENT
  Age: 54 Year
  Sex: Female
  Weight: 93 kg

DRUGS (5)
  1. TREHALOSE [Concomitant]
     Active Substance: TREHALOSE
  2. AVASTIN [Suspect]
     Active Substance: BEVACIZUMAB
     Indication: OVARIAN CANCER
     Route: 065
  3. NATRIUMPHOSPHAT [Concomitant]
  4. TAXOL [Suspect]
     Active Substance: PACLITAXEL
     Indication: OVARIAN CANCER
     Route: 065
  5. POLYSORBATE 20. [Concomitant]
     Active Substance: POLYSORBATE 20

REACTIONS (9)
  - Intestinal perforation [Fatal]
  - Gastrointestinal necrosis [Fatal]
  - Small intestinal resection [Unknown]
  - Explorative laparotomy [Unknown]
  - Metastases to peritoneum [Unknown]
  - Periodontitis [Fatal]
  - Sepsis [Fatal]
  - Abdominal pain [Unknown]
  - Peritonitis [Unknown]

NARRATIVE: CASE EVENT DATE: 201501
